FAERS Safety Report 25958000 (Version 1)
Quarter: 2025Q4

REPORT INFORMATION
  Report Type: Spontaneous
  Country: CN (occurrence: CN)
  Receive Date: 20251024
  Receipt Date: 20251024
  Transmission Date: 20260117
  Serious: Yes (Other)
  Sender: NOVARTIS
  Company Number: CN-002147023-NVSC2025CN161367

PATIENT
  Age: 42 Year
  Sex: Male

DRUGS (6)
  1. CYCLOSPORINE [Suspect]
     Active Substance: CYCLOSPORINE
     Indication: Aplastic anaemia
     Dosage: UNK
     Route: 065
  2. PREDNISONE [Suspect]
     Active Substance: PREDNISONE
     Indication: Paroxysmal nocturnal haemoglobinuria
     Dosage: UNK
     Route: 065
  3. ECULIZUMAB [Suspect]
     Active Substance: ECULIZUMAB
     Indication: Paroxysmal nocturnal haemoglobinuria
     Dosage: 600 MG, QW (INDUCTION THERAPY)
     Route: 042
     Dates: start: 20240131
  4. ECULIZUMAB [Suspect]
     Active Substance: ECULIZUMAB
     Dosage: 900 MG (MAINTENANCE THERAPY)
     Route: 042
     Dates: start: 2024
  5. ROXADUSTAT [Suspect]
     Active Substance: ROXADUSTAT
     Indication: Aplastic anaemia
     Dosage: UNK
     Route: 065
  6. Streptococcus pneumoniae [Concomitant]
     Indication: Product used for unknown indication
     Dosage: UNK (VACCINATION)
     Route: 065

REACTIONS (2)
  - Paroxysmal nocturnal haemoglobinuria [Unknown]
  - Off label use [Unknown]
